FAERS Safety Report 8614438-X (Version None)
Quarter: 2012Q3

REPORT INFORMATION
  Report Type: 
  Country: None (occurrence: None)
  Receive Date: 20120809
  Receipt Date: 20120730
  Transmission Date: 20120928
  Serious: Yes (Hospitalization)
  Sender: FDA-Public Use
  Company Number: AUR-APL-2012-02274

PATIENT
  Age: 75 Year
  Sex: Male

DRUGS (7)
  1. METFFORMIN HYDROCHLORIDE [Concomitant]
  2. WARFARIN SODIUM [Concomitant]
  3. OMEPRAZOLE [Concomitant]
  4. FINASTERIDE [Concomitant]
  5. NAPROXEN [Suspect]
     Indication: PAIN
     Dosage: 500 MG (250 MG, 1 IN 1 D), ORAL
     Route: 048
     Dates: start: 20120426, end: 20120428
  6. ALFUZOSIN HCL [Concomitant]
  7. SIMVASTATIN [Concomitant]

REACTIONS (1)
  - RENAL FAILURE ACUTE [None]
